FAERS Safety Report 7451901-1 (Version None)
Quarter: 2011Q2

REPORT INFORMATION
  Report Type: 
  Country: None (occurrence: None)
  Receive Date: 20110502
  Receipt Date: 20110427
  Transmission Date: 20111010
  Serious: Yes (Hospitalization, Disabling)
  Sender: FDA-Public Use
  Company Number: DE-MERCK-1103DEU00133

PATIENT
  Age: 74 Year
  Sex: Female

DRUGS (3)
  1. RAMIPRIL [Suspect]
     Indication: HYPERTENSION
     Route: 048
     Dates: start: 20090101, end: 20110323
  2. JANUMET [Suspect]
     Indication: TYPE 2 DIABETES MELLITUS
     Route: 048
     Dates: start: 20101201, end: 20101221
  3. XIPAMIDE [Concomitant]
     Route: 065

REACTIONS (1)
  - CUTANEOUS LUPUS ERYTHEMATOSUS [None]
